FAERS Safety Report 24856935 (Version 1)
Quarter: 2025Q1

REPORT INFORMATION
  Report Type: Spontaneous
  Country: US (occurrence: None)
  Receive Date: 20250116
  Receipt Date: 20250116
  Transmission Date: 20250409
  Serious: Yes (Other)
  Sender: FDA-CTU
  Company Number: None

PATIENT
  Age: 22 Year
  Sex: Male
  Weight: 60.2 kg

DRUGS (1)
  1. CABOTEGRAVIR\RILPIVIRINE [Suspect]
     Active Substance: CABOTEGRAVIR\RILPIVIRINE
     Indication: HIV infection
     Route: 030
     Dates: start: 20250116, end: 20250116

REACTIONS (4)
  - Cough [None]
  - Dyspnoea [None]
  - Hyperhidrosis [None]
  - Blood pressure increased [None]

NARRATIVE: CASE EVENT DATE: 20250116
